FAERS Safety Report 9758093 (Version 1)
Quarter: 2013Q4

REPORT INFORMATION
  Report Type: Other
  Country: GB (occurrence: GB)
  Receive Date: 20131216
  Receipt Date: 20131216
  Transmission Date: 20140711
  Serious: Yes (Hospitalization)
  Sender: FDA-Public Use
  Company Number: GB-TARO PHARMACEUTICALS U.S.A., INC-2013SUN05194

PATIENT
  Sex: Male

DRUGS (6)
  1. WARFARIN [Suspect]
     Indication: ATRIAL FIBRILLATION
     Route: 065
  2. OFLOXACIN [Interacting]
     Indication: URINARY TRACT INFECTION
     Route: 048
  3. BISACODYL [Concomitant]
     Dosage: 10 MG, OD
  4. KETOCONAZOLE [Concomitant]
     Route: 061
  5. RAMIPRIL [Concomitant]
     Dosage: 5 MG, OD
  6. SIMVASTATIN [Concomitant]

REACTIONS (4)
  - Drug interaction [Unknown]
  - International normalised ratio increased [Unknown]
  - Coagulation time prolonged [Not Recovered/Not Resolved]
  - Epistaxis [Unknown]
